FAERS Safety Report 11429947 (Version 1)
Quarter: 2015Q3

REPORT INFORMATION
  Report Type: Spontaneous
  Country: US (occurrence: US)
  Receive Date: 20150828
  Receipt Date: 20150828
  Transmission Date: 20151125
  Serious: No
  Sender: FDA-Public Use
  Company Number: US-ROCHE-1202805

PATIENT
  Sex: Male

DRUGS (2)
  1. RIBASPHERE [Suspect]
     Active Substance: RIBAVIRIN
     Indication: CHRONIC HEPATITIS C
     Dosage: FREQUENCY: DAILY IN TWO DEVIDED DOSES
     Route: 048
     Dates: start: 20130228
  2. PEGASYS [Suspect]
     Active Substance: PEGINTERFERON ALFA-2A
     Indication: CHRONIC HEPATITIS C
     Route: 058
     Dates: start: 20130228

REACTIONS (9)
  - Confusional state [Unknown]
  - Depression [Unknown]
  - Decreased appetite [Unknown]
  - Pyrexia [Unknown]
  - Influenza like illness [Unknown]
  - Pain [Unknown]
  - Arthralgia [Unknown]
  - Dysgeusia [Unknown]
  - Insomnia [Unknown]
